FAERS Safety Report 4646292-5 (Version None)
Quarter: 2005Q2

REPORT INFORMATION
  Report Type: 
  Country: None (occurrence: None)
  Receive Date: 20050427
  Receipt Date: 20050117
  Transmission Date: 20051028
  Serious: Yes (Hospitalization, Disabling)
  Sender: FDA-Public Use
  Company Number: US-MERCK-0501USA02848

PATIENT
  Age: 59 Year
  Sex: Female
  Weight: 75 kg

DRUGS (20)
  1. VIOXX [Suspect]
     Indication: ARTHRITIS
     Route: 048
     Dates: start: 19990701, end: 20030501
  2. VIOXX [Suspect]
     Route: 048
     Dates: start: 19990701, end: 20030501
  3. CHRONULAC [Concomitant]
     Indication: CONSTIPATION
     Route: 065
  4. PAXIL [Concomitant]
     Indication: DEPRESSION
     Route: 065
  5. PREVACID [Concomitant]
     Indication: ABDOMINAL DISCOMFORT
     Route: 065
  6. ALBUTEROL [Concomitant]
     Route: 065
  7. METHYLPREDNISOLONE [Concomitant]
     Indication: ASTHMA
     Route: 065
  8. EVISTA [Concomitant]
     Route: 065
  9. EFFEXOR XR [Concomitant]
     Indication: DEPRESSION
     Route: 065
  10. ATACAND [Concomitant]
     Route: 065
  11. FORADIL [Concomitant]
     Route: 065
  12. DELTASONE [Concomitant]
     Route: 065
  13. SINGULAIR [Concomitant]
     Indication: ASTHMA
     Route: 065
  14. CLARINEX [Concomitant]
     Route: 065
  15. ASTELIN [Concomitant]
     Route: 065
  16. COMBIVENT [Concomitant]
     Route: 065
  17. AVELOX [Concomitant]
     Route: 065
  18. TEQUIN [Concomitant]
     Route: 065
  19. LEVAQUIN [Concomitant]
     Route: 065
  20. TAMOXIFEN CITRATE [Concomitant]
     Route: 065

REACTIONS (20)
  - ANXIETY [None]
  - AORTIC VALVE DISEASE [None]
  - APPENDICITIS [None]
  - ASTHMA [None]
  - CEREBROVASCULAR ACCIDENT [None]
  - DEPRESSION [None]
  - DIZZINESS [None]
  - DYSPEPSIA [None]
  - DYSPNOEA EXERTIONAL [None]
  - FALL [None]
  - GASTROOESOPHAGEAL REFLUX DISEASE [None]
  - HYPERLIPIDAEMIA [None]
  - HYPERTENSION [None]
  - MITRAL VALVE DISEASE [None]
  - MYOCARDIAL ISCHAEMIA [None]
  - OEDEMA PERIPHERAL [None]
  - SENSATION OF HEAVINESS [None]
  - SYNCOPE [None]
  - TRANSIENT ISCHAEMIC ATTACK [None]
  - VERTIGO [None]
